FAERS Safety Report 10751686 (Version 2)
Quarter: 2015Q1

REPORT INFORMATION
  Report Type: Spontaneous
  Country: DE (occurrence: DE)
  Receive Date: 20150130
  Receipt Date: 20150130
  Transmission Date: 20150721
  Serious: Yes (Other)
  Sender: FDA-Public Use
  Company Number: DE-ACTAVIS-2015-00860

PATIENT
  Sex: Female

DRUGS (5)
  1. BETAMETHASONE [Concomitant]
     Active Substance: BETAMETHASONE
     Indication: MATERNAL THERAPY TO ENHANCE FOETAL LUNG MATURITY
     Dosage: UNK UNK, UNKNOWN
     Route: 064
  2. CLOBAZAM [Suspect]
     Active Substance: CLOBAZAM
     Indication: EPILEPSY
     Dosage: 40 MG, DAILY
     Route: 064
     Dates: start: 20140402, end: 20141126
  3. LEVETIRACETAM (UNKNOWN) [Suspect]
     Active Substance: LEVETIRACETAM
     Indication: EPILEPSY
     Dosage: 1500 MG, DAILY
     Route: 064
     Dates: start: 20140402, end: 20141126
  4. PHENYTOIN (AMALLC) [Suspect]
     Active Substance: PHENYTOIN
     Indication: EPILEPSY
     Dosage: 400 MG, DAILY
     Route: 064
     Dates: start: 20140402, end: 20141126
  5. VALPROIC ACID (UNKNOWN) [Suspect]
     Active Substance: VALPROIC ACID
     Indication: EPILEPSY
     Dosage: 500 MG, DAILY
     Route: 064
     Dates: start: 20140402, end: 20141126

REACTIONS (4)
  - Respiratory disorder neonatal [Recovered/Resolved]
  - Feeding disorder neonatal [Recovered/Resolved]
  - Bradycardia neonatal [Recovered/Resolved]
  - Foetal exposure during pregnancy [Recovered/Resolved]

NARRATIVE: CASE EVENT DATE: 20141126
